FAERS Safety Report 12138857 (Version 2)
Quarter: 2016Q2

REPORT INFORMATION
  Report Type: Report from Study
  Country: US (occurrence: US)
  Receive Date: 20160302
  Receipt Date: 20160418
  Transmission Date: 20160815
  Serious: Yes (Other)
  Sender: FDA-Public Use
  Company Number: US-REGENERON PHARMACEUTICALS, INC.-2016-13048

PATIENT

DRUGS (3)
  1. EYLEA [Suspect]
     Active Substance: AFLIBERCEPT
     Dosage: ABOUT 10 WEEKS APART, OU
     Route: 031
  2. EYLEA [Suspect]
     Active Substance: AFLIBERCEPT
     Indication: NEOVASCULAR AGE-RELATED MACULAR DEGENERATION
     Dosage: FIRST EYE
     Route: 031
     Dates: start: 200510
  3. EYLEA [Suspect]
     Active Substance: AFLIBERCEPT
     Dosage: SECOND EYE
     Route: 031
     Dates: start: 2009

REACTIONS (2)
  - Dry age-related macular degeneration [Unknown]
  - Blindness [Unknown]
